FAERS Safety Report 4888412-3 (Version None)
Quarter: 2006Q1

REPORT INFORMATION
  Report Type: 
  Country: None (occurrence: None)
  Receive Date: 20060119
  Receipt Date: 20060119
  Transmission Date: 20060701
  Serious: Yes (Hospitalization)
  Sender: FDA-Public Use
  Company Number: None

PATIENT
  Age: 29 Year
  Sex: Male
  Weight: 89.3586 kg

DRUGS (1)
  1. LAMOTRIGINE [Suspect]
     Dosage: 1200 MG PO XX
     Route: 048

REACTIONS (5)
  - CONFUSIONAL STATE [None]
  - CONVERSION DISORDER [None]
  - DRUG TOXICITY [None]
  - LETHARGY [None]
  - MENTAL STATUS CHANGES [None]
